FAERS Safety Report 6703136-5 (Version None)
Quarter: 2010Q2

REPORT INFORMATION
  Report Type: 
  Country: None (occurrence: None)
  Receive Date: 20100430
  Receipt Date: 20100420
  Transmission Date: 20101027
  Serious: Yes (Other)
  Sender: FDA-Public Use
  Company Number: 2005BI000377

PATIENT
  Age: 36 Year
  Sex: Female
  Weight: 70 kg

DRUGS (6)
  1. AVONEX [Suspect]
     Indication: MULTIPLE SCLEROSIS
     Route: 030
     Dates: start: 20000501, end: 20030901
  2. AVONEX [Suspect]
     Route: 030
     Dates: start: 20030901
  3. AVONEX [Suspect]
     Dates: start: 20070501
  4. CABERGOLINE [Concomitant]
     Indication: RESTLESS LEGS SYNDROME
     Dates: start: 20040701
  5. MIRTAZAPINE [Concomitant]
     Indication: DEPRESSION
  6. MODAFINIL [Concomitant]
     Indication: FATIGUE

REACTIONS (2)
  - BREAST CANCER [None]
  - HEART VALVE INCOMPETENCE [None]
